FAERS Safety Report 15151474 (Version 1)
Quarter: 2018Q3

REPORT INFORMATION
  Report Type: Spontaneous
  Country: US (occurrence: US)
  Receive Date: 20180619
  Receipt Date: 20180619
  Transmission Date: 20181010
  Serious: Yes (Hospitalization)
  Sender: FDA-Public Use
  Company Number: None

PATIENT
  Age: 71 Year
  Sex: Female

DRUGS (9)
  1. CALC GLUC [Concomitant]
  2. IBRANCE [Suspect]
     Active Substance: PALBOCICLIB
     Indication: NEOPLASM MALIGNANT
     Route: 048
     Dates: start: 201705
  3. ELIQUIS [Concomitant]
     Active Substance: APIXABAN
  4. GLUCOSAMINE [Concomitant]
     Active Substance: GLUCOSAMINE
  5. FASLODEX [Concomitant]
     Active Substance: FULVESTRANT
  6. TOPROL XL [Concomitant]
     Active Substance: METOPROLOL SUCCINATE
  7. HYDROCHLOROTHIAZIDE. [Concomitant]
     Active Substance: HYDROCHLOROTHIAZIDE
  8. GRANIX [Concomitant]
     Active Substance: TBO-FILGRASTIM
  9. VITAMIN D3 [Concomitant]
     Active Substance: CHOLECALCIFEROL

REACTIONS (3)
  - Cellulitis [None]
  - Drug dose omission [None]
  - Catheter site thrombosis [None]

NARRATIVE: CASE EVENT DATE: 20180604
